FAERS Safety Report 6091392-9 (Version None)
Quarter: 2009Q1

REPORT INFORMATION
  Report Type: 
  Country: None (occurrence: None)
  Receive Date: 20090225
  Receipt Date: 20081208
  Transmission Date: 20090719
  Serious: No
  Sender: FDA-Public Use
  Company Number: A0759469A

PATIENT
  Age: 56 Year
  Sex: Male

DRUGS (4)
  1. VERAMYST [Suspect]
     Dosage: 2SPR TWICE PER DAY
     Route: 045
     Dates: start: 20081001
  2. ENALAPRIL MALEATE [Concomitant]
  3. HEARTBURN MEDICATION [Concomitant]
  4. AFRIN [Concomitant]

REACTIONS (1)
  - CHEST PAIN [None]
